FAERS Safety Report 16487313 (Version 1)
Quarter: 2019Q2

REPORT INFORMATION
  Report Type: Spontaneous
  Country: AU (occurrence: AU)
  Receive Date: 20190627
  Receipt Date: 20190627
  Transmission Date: 20190711
  Serious: Yes (Other)
  Sender: FDA-Public Use
  Company Number: PHHY2019AU144304

PATIENT
  Sex: Female

DRUGS (2)
  1. PREDNISOLONE. [Suspect]
     Active Substance: PREDNISOLONE
     Indication: IMMUNOSUPPRESSANT DRUG THERAPY
  2. PREDNISOLONE. [Suspect]
     Active Substance: PREDNISOLONE
     Indication: LIVER TRANSPLANT
     Dosage: 5.2 MG/M2, QD
     Route: 048

REACTIONS (5)
  - Adrenal insufficiency [Recovered/Resolved]
  - Lethargy [Unknown]
  - Hypoglycaemia [Recovered/Resolved]
  - Product use in unapproved indication [Unknown]
  - Sepsis [Unknown]
